FAERS Safety Report 23074826 (Version 3)
Quarter: 2023Q4

REPORT INFORMATION
  Report Type: Report from Study
  Country: JP (occurrence: JP)
  Receive Date: 20231017
  Receipt Date: 20231201
  Transmission Date: 20240110
  Serious: Yes (Other)
  Sender: FDA-Public Use
  Company Number: JP-CHUGAI-2023036573AA

PATIENT
  Age: 74 Year
  Sex: Male
  Weight: 62.5 kg

DRUGS (14)
  1. ATEZOLIZUMAB [Suspect]
     Active Substance: ATEZOLIZUMAB
     Indication: Lung adenocarcinoma
     Route: 065
     Dates: start: 20231002, end: 20231002
  2. PACLITAXEL [Suspect]
     Active Substance: PACLITAXEL
     Indication: Lung adenocarcinoma
     Dosage: 100 MILLIGRAM/SQ. METER
     Route: 065
     Dates: start: 20231002, end: 20231002
  3. CARBOPLATIN [Suspect]
     Active Substance: CARBOPLATIN
     Indication: Lung adenocarcinoma
     Dosage: AUC6
     Route: 065
     Dates: start: 20231002, end: 20231002
  4. OXYCODONE HYDROCHLORIDE [Concomitant]
     Active Substance: OXYCODONE HYDROCHLORIDE
     Indication: Pain
     Dosage: 10 MILLIGRAM, BID
     Dates: start: 20230926
  5. OXYCODONE HYDROCHLORIDE [Concomitant]
     Active Substance: OXYCODONE HYDROCHLORIDE
     Dosage: 5 MILLIGRAM, QD
     Dates: start: 20230928
  6. CANDESARTAN CILEXETIL [Concomitant]
     Active Substance: CANDESARTAN CILEXETIL
     Indication: Hypertension
     Dosage: 4 MILLIGRAM, QD
  7. ALLOPURINOL [Concomitant]
     Active Substance: ALLOPURINOL
     Indication: Hyperuricaemia
     Dosage: 100 MILLIGRAM, QD
  8. CARVEDILOL [Concomitant]
     Active Substance: CARVEDILOL
     Indication: Hypertension
     Dosage: 10 MILLIGRAM, BID
  9. LANSOPRAZOLE [Concomitant]
     Active Substance: LANSOPRAZOLE
     Indication: Prophylaxis against gastrointestinal ulcer
     Dosage: 15 MILLIGRAM, QD
  10. MIYA-BM [Concomitant]
     Active Substance: CLOSTRIDIUM BUTYRICUM SPORES STRAIN M-55
     Indication: Prophylaxis
     Dosage: 1 GRAM, TID
     Dates: start: 20230903
  11. SYMPROIC [Concomitant]
     Active Substance: NALDEMEDINE
     Indication: Constipation prophylaxis
     Dosage: 0.2 MILLIGRAM, QD
     Dates: start: 20230926
  12. WARFARIN [Concomitant]
     Active Substance: WARFARIN
     Indication: Thrombosis prophylaxis
     Dosage: 2 MILLIGRAM, QD
  13. CALONAL [Concomitant]
     Active Substance: ACETAMINOPHEN
     Indication: Malaise
     Dosage: 500 MILLIGRAM, BID
     Dates: start: 20230927
  14. AMITIZA [Concomitant]
     Active Substance: LUBIPROSTONE
     Indication: Constipation
     Dosage: 12 MICROGRAM, BID
     Dates: start: 20231004, end: 20231004

REACTIONS (5)
  - Infection [Recovered/Resolved]
  - Hypoxia [Unknown]
  - Decreased appetite [Unknown]
  - Troponin I increased [Unknown]
  - Hypoalbuminaemia [Unknown]

NARRATIVE: CASE EVENT DATE: 20231004
